FAERS Safety Report 9353628 (Version 1)
Quarter: 2013Q2

REPORT INFORMATION
  Report Type: Spontaneous
  Country: US (occurrence: US)
  Receive Date: 20130618
  Receipt Date: 20130618
  Transmission Date: 20140414
  Serious: No
  Sender: FDA-Public Use
  Company Number: US-PFIZER INC-2013182706

PATIENT
  Age: 60 Year
  Sex: Female
  Weight: 52.61 kg

DRUGS (4)
  1. CHANTIX [Suspect]
     Indication: SMOKING CESSATION THERAPY
     Dosage: UNK
  2. EVISTA [Concomitant]
     Dosage: UNK
  3. CLONAZEPAM [Concomitant]
     Dosage: UNK
  4. LYRICA [Concomitant]
     Indication: FIBROMYALGIA
     Dosage: 50MG CAPSULE ONCE IN THE MORNING, 25MG ONCE IN THE AFTERNOON AND 50MG ONCE IN THE EVENING
     Route: 048

REACTIONS (1)
  - Malaise [Unknown]
